FAERS Safety Report 20244918 (Version 2)
Quarter: 2022Q1

REPORT INFORMATION
  Report Type: Other
  Country: IL (occurrence: None)
  Receive Date: 20211229
  Receipt Date: 20220107
  Transmission Date: 20220423
  Serious: Yes (Hospitalization)
  Sender: FDA-Public Use
  Company Number: IL-ROCHE-2982464

PATIENT
  Sex: Female

DRUGS (4)
  1. OCREVUS [Suspect]
     Active Substance: OCRELIZUMAB
     Indication: Relapsing-remitting multiple sclerosis
     Dosage: ON 29/DEC/2021, SHE RECEIVED MOST RECENT DOSE OF OCRELIZUMAB.
     Route: 042
     Dates: start: 20190328
  2. LYRICA [Concomitant]
     Active Substance: PREGABALIN
  3. CIPRALEX [Concomitant]
     Active Substance: ESCITALOPRAM OXALATE
  4. CLONEX (ISRAEL) [Concomitant]

REACTIONS (1)
  - Coronavirus pneumonia [Recovered/Resolved]
